FAERS Safety Report 7714884-2 (Version None)
Quarter: 2011Q3

REPORT INFORMATION
  Report Type: 
  Country: None (occurrence: None)
  Receive Date: 20110829
  Receipt Date: 20100827
  Transmission Date: 20111222
  Serious: No
  Sender: FDA-Public Use
  Company Number: US-GLAXOSMITHKLINE-A0878114A

PATIENT
  Sex: Female

DRUGS (7)
  1. UNKNOWN DRUG [Concomitant]
  2. MALARONE [Suspect]
     Indication: MALARIA
     Dosage: 250MG PER DAY
     Route: 048
     Dates: start: 20100414
  3. DESOGEN [Concomitant]
  4. FACE LOTION [Concomitant]
  5. MOTIDINE [Concomitant]
  6. NEUTROGENA [Concomitant]
  7. CIPROFLOXACIN [Concomitant]

REACTIONS (2)
  - RASH PAPULAR [None]
  - PRURITUS [None]
